FAERS Safety Report 6189073-6 (Version None)
Quarter: 2009Q2

REPORT INFORMATION
  Report Type: 
  Country: None (occurrence: None)
  Receive Date: 20090512
  Receipt Date: 20090427
  Transmission Date: 20091009
  Serious: Yes (Hospitalization)
  Sender: FDA-Public Use
  Company Number: 2009BM000072

PATIENT
  Age: 14 Year
  Sex: Female
  Weight: 21.7 kg

DRUGS (4)
  1. NAGLAZYME        (GALSULFASE)  (EXCEPT SYRUP), 1.0MG/ML [Suspect]
     Indication: MUCOPOLYSACCHARIDOSIS VI
     Dosage: 4 VIALS; QW; IVDRP
     Route: 041
     Dates: start: 20080818
  2. ENALAPRIL [Concomitant]
  3. HYDROCHLOROTHIAZIDE [Concomitant]
  4. CEPHALEXIN [Concomitant]

REACTIONS (3)
  - HYPOKALAEMIA [None]
  - INTESTINAL OBSTRUCTION [None]
  - SMALL INTESTINAL OBSTRUCTION [None]
